FAERS Safety Report 17447415 (Version 1)
Quarter: 2020Q1

REPORT INFORMATION
  Report Type: Spontaneous
  Country: ES (occurrence: ES)
  Receive Date: 20200221
  Receipt Date: 20200221
  Transmission Date: 20200409
  Serious: Yes (Hospitalization)
  Sender: FDA-Public Use
  Company Number: NVSC2020ES042795

PATIENT
  Age: 30 Year
  Sex: Male

DRUGS (3)
  1. ELTROMBOPAG [Suspect]
     Active Substance: ELTROMBOPAG
     Indication: BONE MARROW FAILURE
     Dosage: 150 MG, QD
     Route: 048
     Dates: start: 20190214
  2. TIMOGLOBULINA [Suspect]
     Active Substance: LAPINE T-LYMPHOCYTE IMMUNE GLOBULIN
     Indication: APLASIA
     Dosage: 3.75 MG/KG, QD (POWDER FOR SOLUTION FOR INFUSION)
     Route: 042
     Dates: start: 20190214
  3. CICLOSPORINA [Concomitant]
     Active Substance: CYCLOSPORINE
     Indication: APLASIA
     Dosage: 175 MG, BID
     Route: 048
     Dates: start: 20190214

REACTIONS (1)
  - Serum sickness [Recovered/Resolved]

NARRATIVE: CASE EVENT DATE: 20190225
